FAERS Safety Report 25457812 (Version 1)
Quarter: 2025Q2

REPORT INFORMATION
  Report Type: Spontaneous
  Country: CN (occurrence: CN)
  Receive Date: 20250619
  Receipt Date: 20250619
  Transmission Date: 20250717
  Serious: Yes (Hospitalization, Other)
  Sender: ABBVIE
  Company Number: CN-ABBVIE-6331916

PATIENT
  Age: 47 Year
  Sex: Male
  Weight: 76 kg

DRUGS (3)
  1. VENETOCLAX [Suspect]
     Active Substance: VENETOCLAX
     Indication: Acute myeloid leukaemia
     Dosage: 100 MILLIGRAM, D1-7
     Route: 048
     Dates: start: 20250606, end: 20250608
  2. MITOXANTRONE HYDROCHLORIDE [Suspect]
     Active Substance: MITOXANTRONE HYDROCHLORIDE
     Indication: Acute myeloid leukaemia
     Dosage: 45 MILLIGRAM, D1 IVGTT
     Route: 041
     Dates: start: 20250607, end: 20250607
  3. CYTARABINE [Suspect]
     Active Substance: CYTARABINE
     Indication: Acute myeloid leukaemia
     Dosage: 200 MILLIGRAM, D1-7 IVGTT
     Route: 041
     Dates: start: 20250606, end: 20250608

REACTIONS (3)
  - Myelosuppression [Not Recovered/Not Resolved]
  - Tumour lysis syndrome [Not Recovered/Not Resolved]
  - Acute myocardial infarction [Unknown]

NARRATIVE: CASE EVENT DATE: 20250608
